FAERS Safety Report 23124400 (Version 1)
Quarter: 2023Q4

REPORT INFORMATION
  Report Type: Spontaneous
  Country: CN (occurrence: CN)
  Receive Date: 20231030
  Receipt Date: 20231030
  Transmission Date: 20240110
  Serious: Yes (Other)
  Sender: FDA-Public Use
  Company Number: CN-002147023-NVSC2023CN229632

PATIENT

DRUGS (1)
  1. COSENTYX [Suspect]
     Active Substance: SECUKINUMAB
     Indication: Product used for unknown indication
     Dosage: 300 MG/TIME
     Route: 065

REACTIONS (7)
  - Interstitial lung disease [Unknown]
  - Liver injury [Unknown]
  - Arthralgia [Unknown]
  - Emotional disorder [Unknown]
  - Pleural effusion [Unknown]
  - Behaviour disorder [Unknown]
  - Nasopharyngitis [Unknown]

NARRATIVE: CASE EVENT DATE: 20210321
